FAERS Safety Report 10756268 (Version 1)
Quarter: 2015Q1

REPORT INFORMATION
  Report Type: Spontaneous
  Country: US (occurrence: US)
  Receive Date: 20150202
  Receipt Date: 20150202
  Transmission Date: 20150721
  Serious: Yes (Hospitalization)
  Sender: FDA-Public Use
  Company Number: US-ASTRAZENECA-2015SE08238

PATIENT
  Age: 126 Day
  Sex: Male
  Weight: 5 kg

DRUGS (7)
  1. SYNAGIS [Suspect]
     Active Substance: PALIVIZUMAB
     Indication: TRUNCUS ARTERIOSUS PERSISTENT
     Dosage: 15 MG/KG, MONTHLY, 100MG/1 ML VIAL/50 MG/5 ML VIAL
     Route: 030
     Dates: start: 20141106
  2. SYNAGIS [Suspect]
     Active Substance: PALIVIZUMAB
     Indication: PREMATURE BABY
     Route: 030
     Dates: start: 20150114
  3. TYLENOL [Concomitant]
     Active Substance: ACETAMINOPHEN
     Dosage: AS NEEDED
  4. SYNAGIS [Suspect]
     Active Substance: PALIVIZUMAB
     Indication: PREMATURE BABY
     Dosage: 15 MG/KG, MONTHLY, 100MG/1 ML VIAL/50 MG/5 ML VIAL
     Route: 030
     Dates: start: 20141106
  5. SYNAGIS [Suspect]
     Active Substance: PALIVIZUMAB
     Indication: PREMATURE BABY
     Route: 030
     Dates: start: 20141210
  6. SYNAGIS [Suspect]
     Active Substance: PALIVIZUMAB
     Indication: TRUNCUS ARTERIOSUS PERSISTENT
     Route: 030
     Dates: start: 20150114
  7. SYNAGIS [Suspect]
     Active Substance: PALIVIZUMAB
     Indication: TRUNCUS ARTERIOSUS PERSISTENT
     Route: 030
     Dates: start: 20141210

REACTIONS (2)
  - Cardiac disorder [Unknown]
  - Spinal cord disorder [Unknown]

NARRATIVE: CASE EVENT DATE: 20150107
